FAERS Safety Report 7560277-0 (Version None)
Quarter: 2011Q2

REPORT INFORMATION
  Report Type: 
  Country: None (occurrence: None)
  Receive Date: 20110621
  Receipt Date: 20110615
  Transmission Date: 20111010
  Serious: Yes (Other)
  Sender: FDA-Public Use
  Company Number: BE-ROXANE LABORATORIES, INC.-2011-RO-00817RO

PATIENT
  Age: 48 Year
  Sex: Female
  Weight: 67 kg

DRUGS (5)
  1. MEFLOQUINE HYDROCHLORIDE [Suspect]
     Indication: MALARIA PROPHYLAXIS
  2. RITONAVIR [Suspect]
     Indication: HIV TEST POSITIVE
     Dosage: 100 MG
  3. TENOFOVIR DISOPROXIL FUMARATE [Suspect]
     Indication: HIV TEST POSITIVE
     Dosage: 300 MG
  4. LAMIVUDINE [Suspect]
     Indication: HIV TEST POSITIVE
     Dosage: 150 MG
  5. ATAZANAVIR [Suspect]
     Indication: HIV TEST POSITIVE
     Dosage: 300 MG

REACTIONS (1)
  - PHOBIA OF FLYING [None]
